FAERS Safety Report 4463782-9 (Version None)
Quarter: 2004Q3

REPORT INFORMATION
  Report Type: 
  Country: None (occurrence: None)
  Receive Date: 20040929
  Receipt Date: 20040917
  Transmission Date: 20050211
  Serious: Yes (Other)
  Sender: FDA-Public Use
  Company Number: 2004RL000107

PATIENT
  Age: 79 Year
  Sex: Female

DRUGS (2)
  1. RYTHMOL [Suspect]
     Indication: ARRHYTHMIA
     Dosage: 300 MG;QD;PO
     Route: 048
     Dates: start: 20040401, end: 20040101
  2. LOSARTAN POTASSIUM [Concomitant]

REACTIONS (2)
  - CONFUSIONAL STATE [None]
  - DELIRIUM [None]
